FAERS Safety Report 22009114 (Version 4)
Quarter: 2024Q1

REPORT INFORMATION
  Report Type: Spontaneous
  Country: JP (occurrence: JP)
  Receive Date: 20230220
  Receipt Date: 20240103
  Transmission Date: 20240410
  Serious: Yes (Hospitalization)
  Sender: FDA-Public Use
  Company Number: JP-CHUGAI-2023004324

PATIENT
  Age: 18 Year
  Sex: Male
  Weight: 55 kg

DRUGS (1)
  1. HEMLIBRA [Suspect]
     Active Substance: EMICIZUMAB-KXWH
     Indication: Haemophilia A with anti factor VIII
     Route: 058
     Dates: start: 20180802

REACTIONS (3)
  - Muscle haemorrhage [Recovered/Resolved]
  - Injury [Unknown]
  - Muscle disorder [Unknown]

NARRATIVE: CASE EVENT DATE: 20220731
